FAERS Safety Report 14581772 (Version 2)
Quarter: 2018Q1

REPORT INFORMATION
  Report Type: Report from Study
  Country: JP (occurrence: JP)
  Receive Date: 20180228
  Receipt Date: 20180312
  Transmission Date: 20180509
  Serious: Yes (Death, Other)
  Sender: FDA-Public Use
  Company Number: JP-BRISTOL-MYERS SQUIBB COMPANY-BMS-2018-017123

PATIENT
  Age: 53 Year
  Sex: Male
  Weight: 79 kg

DRUGS (6)
  1. LOXOPROFEN                         /00890702/ [Concomitant]
     Active Substance: LOXOPROFEN
     Indication: MALIGNANT MELANOMA
     Dosage: 180 MG, UNK
     Route: 065
     Dates: start: 20170113, end: 20170124
  2. LYRICA [Concomitant]
     Active Substance: PREGABALIN
     Indication: MALIGNANT MELANOMA
     Dosage: 100 MG, UNK
     Route: 065
     Dates: start: 20170114
  3. IPILIMUMAB [Suspect]
     Active Substance: IPILIMUMAB
     Indication: MALIGNANT MELANOMA
     Dosage: 3 MG/KG, UNK
     Route: 041
     Dates: start: 20170113, end: 20170113
  4. MAGMITT [Concomitant]
     Active Substance: MAGNESIUM OXIDE
     Indication: CONSTIPATION
     Dosage: 990 MG, UNK
     Route: 065
     Dates: start: 20170113
  5. LANSOPRAZOLE. [Concomitant]
     Active Substance: LANSOPRAZOLE
     Indication: PROPHYLAXIS
     Dosage: 15 MG, UNK
     Route: 048
     Dates: start: 20170113, end: 20170125
  6. CALONAL [Concomitant]
     Active Substance: ACETAMINOPHEN
     Indication: MALIGNANT MELANOMA
     Dosage: 3000 MG, UNK
     Route: 048
     Dates: start: 20170114

REACTIONS (2)
  - Malignant neoplasm progression [Fatal]
  - Pyrexia [Recovered/Resolved]

NARRATIVE: CASE EVENT DATE: 20170119
